FAERS Safety Report 5846825-7 (Version None)
Quarter: 2008Q3

REPORT INFORMATION
  Report Type: 
  Country: None (occurrence: None)
  Receive Date: 20080815
  Receipt Date: 20080813
  Transmission Date: 20090109
  Serious: Yes (Hospitalization, Other)
  Sender: FDA-Public Use
  Company Number: US-RB-003294-08

PATIENT
  Sex: Male

DRUGS (2)
  1. SUBUTEX [Suspect]
     Route: 064
     Dates: start: 20071101
  2. SUBUTEX [Suspect]
     Dosage: TAPERING DOWN ON VARIOUS DOSAGES.
     Route: 064
     Dates: end: 20080401

REACTIONS (2)
  - DRUG EXPOSURE DURING PREGNANCY [None]
  - PREMATURE BABY [None]
